FAERS Safety Report 16039460 (Version 1)
Quarter: 2019Q1

REPORT INFORMATION
  Report Type: Spontaneous
  Country: US (occurrence: US)
  Receive Date: 20190206
  Receipt Date: 20190206
  Transmission Date: 20190418
  Serious: No
  Sender: FDA-Public Use
  Company Number: None

PATIENT
  Age: 38 Year
  Sex: Male

DRUGS (1)
  1. ENTECAVIR  0.5MG TAB (X30) [Suspect]
     Active Substance: ENTECAVIR
     Dates: start: 201802

REACTIONS (5)
  - Blood pressure increased [None]
  - Nausea [None]
  - Malaise [None]
  - Headache [None]
  - Weight decreased [None]

NARRATIVE: CASE EVENT DATE: 20190203
